FAERS Safety Report 7254910-0 (Version None)
Quarter: 2011Q1

REPORT INFORMATION
  Report Type: 
  Country: None (occurrence: None)
  Receive Date: 20110129
  Receipt Date: 20100215
  Transmission Date: 20110831
  Serious: Yes (Other)
  Sender: FDA-Public Use
  Company Number: US-ABBOTT-10P-163-0624577-00

PATIENT
  Age: 61 Year
  Sex: Female
  Weight: 112.14 kg

DRUGS (21)
  1. BLOOD SUGAR DIAGNOSTIC (PRECISION XTRA TEST) VI STRIP [Concomitant]
     Indication: PRODUCT USED FOR UNKNOWN INDICATION
  2. ASPIRIN [Concomitant]
     Indication: PRODUCT USED FOR UNKNOWN INDICATION
     Route: 048
  3. INSULIN GLARGINE [Concomitant]
     Indication: PRODUCT USED FOR UNKNOWN INDICATION
     Dosage: 100 UNIT/ML, USE 45 UNITS EVERY AM AND 45 + EVERY PM
     Route: 058
  4. NOVOLOG [Concomitant]
     Indication: PRODUCT USED FOR UNKNOWN INDICATION
     Dosage: 100 UNIT/ML
     Route: 058
  5. PLAVIX [Concomitant]
     Indication: PRODUCT USED FOR UNKNOWN INDICATION
     Route: 048
  6. HUMIRA [Suspect]
     Indication: CROHN'S DISEASE
     Dates: start: 20070101, end: 20080501
  7. PROPOXYPHENE NAPSYLATE W/ ACETAMINOPHEN [Concomitant]
     Indication: PAIN
     Dosage: 1-2 TABS EVERY 6 HOURS AS NEEDED
     Route: 048
  8. IRON [Concomitant]
     Indication: PRODUCT USED FOR UNKNOWN INDICATION
     Route: 048
  9. HUMIRA [Suspect]
     Dates: start: 20081201, end: 20090101
  10. HUMIRA [Suspect]
     Dates: start: 20091101
  11. TRIAMCINOLONE ACETONIDE [Concomitant]
     Indication: PRODUCT USED FOR UNKNOWN INDICATION
     Dosage: BOTH NOSTRIL SPRA
  12. EZETIMIBE/SAMVASTATIN [Concomitant]
     Indication: PRODUCT USED FOR UNKNOWN INDICATION
     Dosage: 10-40 MG
     Route: 048
  13. ADALIMUMAB [Concomitant]
     Indication: CROHN'S DISEASE
     Dosage: TAKE 160 MG DAY 1, AND 80 MG DAY 15 (NDC: 0074-4339-06)
  14. ESOMEPRAZOLE [Concomitant]
     Indication: PRODUCT USED FOR UNKNOWN INDICATION
     Route: 048
  15. GLYBURIDE [Concomitant]
     Indication: PRODUCT USED FOR UNKNOWN INDICATION
     Route: 048
  16. METFORMIN [Concomitant]
     Indication: PRODUCT USED FOR UNKNOWN INDICATION
  17. HUMIRA [Suspect]
     Dates: start: 20080601, end: 20081201
  18. FLUTICASONE W/SALMETEROL [Concomitant]
     Indication: PRODUCT USED FOR UNKNOWN INDICATION
     Dosage: 250-50 MCG
     Route: 055
  19. ATENOLOL [Concomitant]
     Indication: PRODUCT USED FOR UNKNOWN INDICATION
     Route: 048
  20. TRIAMCINOLONE ACETONIDE [Concomitant]
     Route: 061
  21. MESALAMINE [Concomitant]
     Indication: PRODUCT USED FOR UNKNOWN INDICATION
     Route: 048

REACTIONS (8)
  - DEFAECATION URGENCY [None]
  - FATIGUE [None]
  - DIARRHOEA [None]
  - CHEST PAIN [None]
  - FLATULENCE [None]
  - DYSPNOEA [None]
  - ABDOMINAL PAIN [None]
  - CELLULITIS [None]
